FAERS Safety Report 4444815-2 (Version None)
Quarter: 2004Q3

REPORT INFORMATION
  Report Type: 
  Country: None (occurrence: None)
  Receive Date: 20040907
  Receipt Date: 20040907
  Transmission Date: 20050211
  Serious: No
  Sender: FDA-Public Use
  Company Number: None

PATIENT
  Age: 22 Year
  Sex: Male
  Weight: 74.8435 kg

DRUGS (6)
  1. ABILIFY [Suspect]
     Indication: PERSONALITY DISORDER
     Dosage: 15 MG DAILY IN AM
     Dates: start: 20040817
  2. ABILIFY [Suspect]
     Indication: PERSONALITY DISORDER
     Dosage: 15 MG DAILY IN AM
     Dates: start: 20040818
  3. ABILIFY [Suspect]
     Indication: PERSONALITY DISORDER
     Dosage: 15 MG DAILY IN AM
     Dates: start: 20040819
  4. CELEXA [Concomitant]
  5. MIRTAZAPINE [Concomitant]
  6. LORAZEPAM [Concomitant]

REACTIONS (3)
  - FEELING ABNORMAL [None]
  - MUSCULOSKELETAL STIFFNESS [None]
  - NUCHAL RIGIDITY [None]
